FAERS Safety Report 14602552 (Version 4)
Quarter: 2021Q1

REPORT INFORMATION
  Report Type: Spontaneous
  Country: US (occurrence: US)
  Receive Date: 20180306
  Receipt Date: 20210127
  Transmission Date: 20210419
  Serious: No
  Sender: FDA-Public Use
  Company Number: US-PFIZER INC-2018089788

PATIENT
  Age: 69 Year
  Sex: Female

DRUGS (1)
  1. VENLAFAXINE HCL [Suspect]
     Active Substance: VENLAFAXINE HYDROCHLORIDE
     Dosage: 75 MG, 1X/DAY
     Dates: end: 2015

REACTIONS (4)
  - Drug tolerance [Unknown]
  - Crying [Recovered/Resolved]
  - Impaired work ability [Recovered/Resolved]
  - Social problem [Recovered/Resolved]

NARRATIVE: CASE EVENT DATE: 2015
